FAERS Safety Report 7761845-3 (Version None)
Quarter: 2011Q3

REPORT INFORMATION
  Report Type: 
  Country: None (occurrence: None)
  Receive Date: 20110920
  Receipt Date: 20110914
  Transmission Date: 20111222
  Serious: Yes (Life-Threatening, Hospitalization)
  Sender: FDA-Public Use
  Company Number: US-CELGENEUS-163-21880-11080566

PATIENT
  Sex: Male

DRUGS (5)
  1. TAMSULOSIN HCL [Concomitant]
     Dosage: .4 MILLIGRAM
     Route: 065
     Dates: start: 20110720
  2. CEPHALEXIN [Concomitant]
     Dosage: 500 MILLIGRAM
     Route: 065
     Dates: start: 20110728
  3. REVLIMID [Suspect]
     Dosage: 10 MILLIGRAM
     Route: 048
     Dates: start: 20110620, end: 20110711
  4. REVLIMID [Suspect]
     Dosage: 5 MILLIGRAM
     Route: 048
     Dates: start: 20110803
  5. PANTOPRAZOLE [Concomitant]
     Dosage: 1
     Route: 065
     Dates: start: 20110720

REACTIONS (2)
  - PANCYTOPENIA [None]
  - RECTAL HAEMORRHAGE [None]
